FAERS Safety Report 13984757 (Version 1)
Quarter: 2017Q3

REPORT INFORMATION
  Report Type: Spontaneous
  Country: FR (occurrence: FR)
  Receive Date: 20170918
  Receipt Date: 20170918
  Transmission Date: 20171128
  Serious: Yes (Other)
  Sender: FDA-Public Use
  Company Number: FR-MERCK KGAA-2026728

PATIENT
  Age: 78 Year
  Sex: Female

DRUGS (4)
  1. XARELTO [Concomitant]
     Active Substance: RIVAROXABAN
  2. NOVOTHYROX [Suspect]
     Active Substance: LEVOTHYROXINE SODIUM
     Indication: POST PROCEDURAL HYPOTHYROIDISM
     Dates: start: 201703
  3. HEMIGOXINE [Concomitant]
     Active Substance: DIGOXIN
  4. FLUDEX [Concomitant]
     Active Substance: INDAPAMIDE

REACTIONS (5)
  - Nervousness [Unknown]
  - Memory impairment [Unknown]
  - Muscle spasms [Unknown]
  - Hyperthyroidism [Unknown]
  - Aggression [Unknown]

NARRATIVE: CASE EVENT DATE: 2017
